FAERS Safety Report 21946648 (Version 1)
Quarter: 2023Q1

REPORT INFORMATION
  Report Type: Spontaneous
  Country: US (occurrence: None)
  Receive Date: 20230202
  Receipt Date: 20230202
  Transmission Date: 20230418
  Serious: Yes (Disabling)
  Sender: FDA-Public Use
  Company Number: None

PATIENT
  Age: 67 Year
  Sex: Male
  Weight: 94.5 kg

DRUGS (1)
  1. ARTIFICIAL TEARS LUBRICANT EYE DROPS (CARBOXYMETHYLCELLULOSE SODIUM) [Suspect]
     Active Substance: CARBOXYMETHYLCELLULOSE SODIUM
     Indication: Dry eye
     Dosage: FREQUENCY : EVERY 12 HOURS;?
     Route: 047
     Dates: start: 20230116, end: 20230201

REACTIONS (4)
  - Erythema of eyelid [None]
  - Swelling of eyelid [None]
  - Eyelids pruritus [None]
  - Therapy non-responder [None]

NARRATIVE: CASE EVENT DATE: 20230116
